FAERS Safety Report 4474403-3 (Version None)
Quarter: 2004Q4

REPORT INFORMATION
  Report Type: 
  Country: None (occurrence: None)
  Receive Date: 20041014
  Receipt Date: 20041007
  Transmission Date: 20050328
  Serious: Yes (Disabling)
  Sender: FDA-Public Use
  Company Number: US-MERCK-0410USA01205

PATIENT
  Age: 78 Year
  Sex: Female

DRUGS (5)
  1. TYLENOL [Concomitant]
     Route: 065
  2. ATIVAN [Concomitant]
     Route: 065
  3. PROTONIX [Concomitant]
     Route: 065
  4. VIOXX [Suspect]
     Indication: ARTHRITIS
     Route: 048
     Dates: end: 20040930
  5. VIOXX [Suspect]
     Route: 048

REACTIONS (1)
  - CARDIAC VALVE DISEASE [None]
